FAERS Safety Report 6965887-7 (Version None)
Quarter: 2010Q3

REPORT INFORMATION
  Report Type: 
  Country: None (occurrence: None)
  Receive Date: 20100903
  Receipt Date: 20100901
  Transmission Date: 20110219
  Serious: Yes (Hospitalization)
  Sender: FDA-Public Use
  Company Number: ES-ABBOTT-07P-144-0375921-00

PATIENT
  Sex: Female
  Weight: 68 kg

DRUGS (10)
  1. HUMIRA [Suspect]
     Indication: RHEUMATOID ARTHRITIS
     Route: 058
     Dates: start: 20040917, end: 20050829
  2. HUMIRA [Suspect]
     Route: 058
     Dates: start: 20051014, end: 20051028
  3. HUMIRA [Suspect]
     Dates: start: 20060517
  4. COMMERCIAL HUMIRA [Concomitant]
     Indication: RHEUMATOID ARTHRITIS
     Dates: start: 20040327
  5. MTX [Concomitant]
     Indication: RHEUMATOID ARTHRITIS
     Dates: start: 20040901
  6. LEDERTOLIN [Concomitant]
     Indication: PROPHYLAXIS
     Dates: start: 19980211
  7. DACORTIN [Concomitant]
     Indication: RHEUMATOID ARTHRITIS
     Dates: start: 19980211
  8. RAMITIDIMA [Concomitant]
     Indication: PROPHYLAXIS AGAINST GASTROINTESTINAL ULCER
     Dates: start: 19940314
  9. DICLOFENAC [Concomitant]
     Indication: RHEUMATOID ARTHRITIS
     Dates: start: 20040801
  10. LIQUIFILM [Concomitant]
     Indication: DRY EYE
     Dates: start: 19970101

REACTIONS (2)
  - CHOLELITHIASIS [None]
  - SEROMA [None]
